FAERS Safety Report 12311982 (Version 4)
Quarter: 2016Q3

REPORT INFORMATION
  Report Type: Spontaneous
  Country: BR (occurrence: BR)
  Receive Date: 20160427
  Receipt Date: 20160729
  Transmission Date: 20161109
  Serious: Yes (Death, Disabling, Other)
  Sender: FDA-Public Use
  Company Number: BR-ABBVIE-16P-020-1615018-00

PATIENT
  Age: 91 Year
  Sex: Male
  Weight: 60 kg

DRUGS (9)
  1. ZILEDON [Concomitant]
     Active Substance: DONEPEZIL HYDROCHLORIDE
     Indication: MEMORY IMPAIRMENT
     Dosage: 10MG DAILY AT NIGHT
     Route: 048
     Dates: start: 201508
  2. DEPAKENE [Suspect]
     Active Substance: VALPROIC ACID
     Indication: CONVULSION PROPHYLAXIS
     Dosage: DAILY DOSE: 500MG; IN THE MORNING, AT NIGHT
     Route: 048
     Dates: start: 2013
  3. VITERSOL D [Concomitant]
     Active Substance: CHOLECALCIFEROL
     Indication: VITAMIN SUPPLEMENTATION
     Dosage: 1 CAPSULE DAILY AFTER LUNCH
     Route: 048
     Dates: start: 201512
  4. SOTALOL HYDROCHLORIDE. [Concomitant]
     Active Substance: SOTALOL HYDROCHLORIDE
     Indication: ARRHYTHMIA
     Dosage: 0.5 TAB DAILY IN THE AFTERNOON
     Route: 048
     Dates: start: 2013
  5. SIMVASTATIN. [Concomitant]
     Active Substance: SIMVASTATIN
     Indication: BLOOD TRIGLYCERIDES
     Dosage: 1 TAB DAILY AT NIGHT
     Route: 048
  6. BICALUTAMIDE. [Concomitant]
     Active Substance: BICALUTAMIDE
     Indication: PROSTATE CANCER
     Dosage: 1 TAB DAILY IN THE AFTERNOON
     Route: 048
     Dates: start: 2004
  7. OMEPRAZOLE. [Concomitant]
     Active Substance: OMEPRAZOLE
     Indication: PROPHYLAXIS
     Dosage: FASTING
     Route: 048
  8. FUROSEMIDE. [Concomitant]
     Active Substance: FUROSEMIDE
     Indication: DIURETIC THERAPY
     Dosage: 0.5 TAB DAILY AT NIGHT; FREQUENCY:ALTERNATE-PATIENT TAKES 1 DAY AND THEN STOPS FOR 2 DAYS
     Route: 048
     Dates: start: 2010
  9. PURAN [Concomitant]
     Active Substance: LEVOTHYROXINE SODIUM
     Indication: HYPOTHYROIDISM
     Dosage: 25MG DAILY; FASTING
     Route: 048
     Dates: start: 2010

REACTIONS (7)
  - Death [Fatal]
  - Dysphagia [Not Recovered/Not Resolved]
  - Pneumonia [Recovering/Resolving]
  - Neoplasm [Not Recovered/Not Resolved]
  - Illusion [Not Recovered/Not Resolved]
  - Skin cancer metastatic [Not Recovered/Not Resolved]
  - Gait disturbance [Not Recovered/Not Resolved]

NARRATIVE: CASE EVENT DATE: 201602
